FAERS Safety Report 20910632 (Version 2)
Quarter: 2022Q2

REPORT INFORMATION
  Report Type: Report from Study
  Country: US (occurrence: US)
  Receive Date: 20220603
  Receipt Date: 20220609
  Transmission Date: 20220721
  Serious: Yes (Life-Threatening, Disabling, Other)
  Sender: FDA-Public Use
  Company Number: US-BIOGEN-2022BI01128685

PATIENT
  Sex: Female

DRUGS (21)
  1. AVONEX [Suspect]
     Active Substance: INTERFERON BETA-1A
     Indication: Multiple sclerosis
     Route: 065
     Dates: start: 19991111, end: 20061111
  2. AVONEX [Suspect]
     Active Substance: INTERFERON BETA-1A
     Route: 065
  3. AVONEX [Suspect]
     Active Substance: INTERFERON BETA-1A
  4. AVONEX [Suspect]
     Active Substance: INTERFERON BETA-1A
  5. AVONEX [Suspect]
     Active Substance: INTERFERON BETA-1A
  6. AVONEX [Suspect]
     Active Substance: INTERFERON BETA-1A
  7. AVONEX [Suspect]
     Active Substance: INTERFERON BETA-1A
  8. AVONEX [Suspect]
     Active Substance: INTERFERON BETA-1A
  9. AVONEX [Suspect]
     Active Substance: INTERFERON BETA-1A
  10. AVONEX [Suspect]
     Active Substance: INTERFERON BETA-1A
  11. AVONEX [Suspect]
     Active Substance: INTERFERON BETA-1A
  12. AVONEX [Suspect]
     Active Substance: INTERFERON BETA-1A
  13. AVONEX [Suspect]
     Active Substance: INTERFERON BETA-1A
  14. AVONEX PEN [Suspect]
     Active Substance: INTERFERON BETA-1A
     Indication: Multiple sclerosis
     Route: 065
  15. AVONEX PEN [Suspect]
     Active Substance: INTERFERON BETA-1A
  16. AVONEX PEN [Suspect]
     Active Substance: INTERFERON BETA-1A
  17. AVONEX PEN [Suspect]
     Active Substance: INTERFERON BETA-1A
  18. AVONEX [Suspect]
     Active Substance: INTERFERON BETA-1A
     Indication: Multiple sclerosis
     Route: 065
  19. AVONEX [Suspect]
     Active Substance: INTERFERON BETA-1A
  20. AVONEX [Suspect]
     Active Substance: INTERFERON BETA-1A
  21. AVONEX [Suspect]
     Active Substance: INTERFERON BETA-1A

REACTIONS (34)
  - Loss of consciousness [Unknown]
  - Musculoskeletal disorder [Unknown]
  - Spinal cord compression [Unknown]
  - Intervertebral disc protrusion [Unknown]
  - Foot fracture [Unknown]
  - Bone deformity [Unknown]
  - Upper limb fracture [Unknown]
  - Erythema [Unknown]
  - Respiratory fume inhalation disorder [Unknown]
  - Foot deformity [Unknown]
  - Tendon disorder [Unknown]
  - Road traffic accident [Unknown]
  - Gait disturbance [Unknown]
  - Joint swelling [Unknown]
  - Decreased immune responsiveness [Unknown]
  - Wound [Unknown]
  - Muscle atrophy [Unknown]
  - Decubitus ulcer [Unknown]
  - Dry skin [Unknown]
  - Therapy cessation [Unknown]
  - Weight bearing difficulty [Unknown]
  - Gait inability [Unknown]
  - Mobility decreased [Unknown]
  - Impaired healing [Unknown]
  - Scab [Unknown]
  - Haemorrhage [Unknown]
  - Pruritus [Unknown]
  - Skin exfoliation [Unknown]
  - Skin lesion [Unknown]
  - Psoriasis [Unknown]
  - Deformity [Unknown]
  - Pain [Unknown]
  - Emotional distress [Unknown]
  - Injection site atrophy [Unknown]
